FAERS Safety Report 26128828 (Version 1)
Quarter: 2025Q4

REPORT INFORMATION
  Report Type: Spontaneous
  Country: EU (occurrence: EU)
  Receive Date: 20251208
  Receipt Date: 20251208
  Transmission Date: 20260118
  Serious: Yes (Hospitalization, Other)
  Sender: PHARMOBEDIENT CONSULTING, LLC
  Company Number: EU-Pharmobedient-000595

PATIENT
  Age: 19 Year
  Sex: Male

DRUGS (6)
  1. ACYCLOVIR [Suspect]
     Active Substance: ACYCLOVIR
     Indication: Varicella
     Route: 042
  2. VALACYCLOVIR [Suspect]
     Active Substance: VALACYCLOVIR HYDROCHLORIDE
     Indication: Varicella
  3. RUXOLITINIB [Concomitant]
     Active Substance: RUXOLITINIB
     Indication: Haemophagocytic lymphohistiocytosis
  4. PREDNISONE [Concomitant]
     Active Substance: PREDNISONE
     Indication: Haemophagocytic lymphohistiocytosis
  5. VALACYCLOVIR [Suspect]
     Active Substance: VALACYCLOVIR HYDROCHLORIDE
     Indication: Varicella
  6. VALACYCLOVIR [Suspect]
     Active Substance: VALACYCLOVIR HYDROCHLORIDE
     Indication: Varicella

REACTIONS (2)
  - Varicella zoster virus infection [Unknown]
  - Drug resistance [Unknown]
